FAERS Safety Report 8075565-1 (Version None)
Quarter: 2012Q1

REPORT INFORMATION
  Report Type: 
  Country: None (occurrence: None)
  Receive Date: 20120127
  Receipt Date: 20120118
  Transmission Date: 20120608
  Serious: Yes (Life-Threatening, Hospitalization)
  Sender: FDA-Public Use
  Company Number: FR-VERTEX PHARMACEUTICALS INC.-000000000000000106

PATIENT
  Sex: Male

DRUGS (7)
  1. INCIVO (TELAPREVIR) [Suspect]
     Indication: HEPATITIS C
     Dosage: DOSAGE FORM: TABLET
     Route: 048
     Dates: start: 20111108, end: 20120103
  2. PEGASYS [Concomitant]
     Indication: HEPATITIS C
     Dosage: DOSAGE FORM: SOLUTION FOR INJECTION
     Route: 058
     Dates: start: 20111003, end: 20120103
  3. SILODOSIN [Concomitant]
     Dates: end: 20120103
  4. PROZAC [Concomitant]
     Dates: end: 20120103
  5. VESICARE [Concomitant]
  6. FOLIC ACID [Concomitant]
     Dates: end: 20120103
  7. RIBAVIRINE [Concomitant]
     Indication: HEPATITIS C
     Route: 048
     Dates: start: 20111003, end: 20120103

REACTIONS (3)
  - THROMBOCYTOPENIA [None]
  - APLASTIC ANAEMIA [None]
  - PANCYTOPENIA [None]
